FAERS Safety Report 6558894-X (Version None)
Quarter: 2010Q1

REPORT INFORMATION
  Report Type: 
  Country: None (occurrence: None)
  Receive Date: 20100129
  Receipt Date: 20100119
  Transmission Date: 20100710
  Serious: Yes (Hospitalization)
  Sender: FDA-Public Use
  Company Number: US-BAXTER-2010BH001913

PATIENT
  Age: 56 Year
  Sex: Female

DRUGS (6)
  1. DIANEAL [Suspect]
     Indication: PERITONEAL DIALYSIS
     Route: 033
     Dates: start: 20090101, end: 20100106
  2. DIANEAL [Suspect]
     Route: 033
     Dates: start: 20100106, end: 20100110
  3. DIANEAL [Suspect]
     Route: 033
     Dates: start: 20100110, end: 20100118
  4. DIANEAL [Suspect]
     Route: 033
     Dates: start: 20100118
  5. GLIPIZIDE [Concomitant]
     Indication: DIABETES MELLITUS
     Route: 048
     Dates: start: 20091222
  6. INSULIN [Concomitant]
     Indication: DIABETES MELLITUS
     Route: 058

REACTIONS (2)
  - GASTRITIS [None]
  - PERITONEAL DIALYSIS COMPLICATION [None]
